FAERS Safety Report 7364133-2 (Version None)
Quarter: 2011Q1

REPORT INFORMATION
  Report Type: 
  Country: None (occurrence: None)
  Receive Date: 20110321
  Receipt Date: 20110318
  Transmission Date: 20110831
  Serious: Yes (Death)
  Sender: FDA-Public Use
  Company Number: PHHY2011US21015

PATIENT
  Sex: Female
  Weight: 97.506 kg

DRUGS (3)
  1. STEROIDS NOS [Concomitant]
  2. SANDIMMUNE [Suspect]
     Indication: COMPLICATIONS OF TRANSPLANT SURGERY
     Dosage: 75 MG AM, 50 MG PM
     Dates: end: 20110301
  3. IMMUNOSUPPRESSANTS [Concomitant]

REACTIONS (5)
  - CARDIAC FAILURE [None]
  - CELLULITIS [None]
  - OEDEMA [None]
  - INFECTION [None]
  - RENAL FAILURE [None]
